FAERS Safety Report 13641635 (Version 3)
Quarter: 2017Q3

REPORT INFORMATION
  Report Type: Report from Study
  Country: US (occurrence: US)
  Receive Date: 20170612
  Receipt Date: 20170830
  Transmission Date: 20171127
  Serious: Yes (Hospitalization)
  Sender: FDA-Public Use
  Company Number: US-JNJFOC-20170501708

PATIENT
  Age: 78 Year
  Sex: Female

DRUGS (18)
  1. ASA [Suspect]
     Active Substance: ASPIRIN
     Indication: PROPHYLAXIS
     Route: 065
     Dates: start: 20011010, end: 20170402
  2. PRESERVISION AREDS [Concomitant]
     Active Substance: MINERALS\VITAMINS
  3. IMBRUVICA [Suspect]
     Active Substance: IBRUTINIB
     Indication: CHRONIC LYMPHOCYTIC LEUKAEMIA
     Route: 048
     Dates: start: 20160916, end: 20170328
  4. FLEXERIL [Concomitant]
     Active Substance: CYCLOBENZAPRINE HYDROCHLORIDE
  5. CALTRATE [Concomitant]
     Active Substance: CALCIUM CARBONATE
  6. METAMUCIL [Concomitant]
     Active Substance: PLANTAGO SEED
  7. GLUCOSAMINE [Concomitant]
     Active Substance: GLUCOSAMINE
  8. POTASSIUM [Concomitant]
     Active Substance: POTASSIUM
  9. OFATUMUMAB [Suspect]
     Active Substance: OFATUMUMAB
     Indication: PRODUCT USED FOR UNKNOWN INDICATION
     Route: 065
     Dates: start: 201702
  10. CLINDAMYCIN. [Concomitant]
     Active Substance: CLINDAMYCIN
  11. AZITHROMYCIN ANHYDROUS. [Concomitant]
     Active Substance: AZITHROMYCIN ANHYDROUS
  12. MECLIZINE [Concomitant]
     Active Substance: MECLIZINE HYDROCHLORIDE
  13. ATORVASTATIN [Concomitant]
     Active Substance: ATORVASTATIN
  14. ZANTAC [Concomitant]
     Active Substance: RANITIDINE HYDROCHLORIDE
  15. ACYCLOVIR. [Concomitant]
     Active Substance: ACYCLOVIR
  16. FUROSEMIDE. [Concomitant]
     Active Substance: FUROSEMIDE
  17. DOXYCYCLINE. [Concomitant]
     Active Substance: DOXYCYCLINE
  18. HCTZ [Concomitant]
     Active Substance: HYDROCHLOROTHIAZIDE

REACTIONS (6)
  - Cellulitis [Recovered/Resolved]
  - Viral upper respiratory tract infection [Recovered/Resolved]
  - Epistaxis [Recovered/Resolved]
  - Acute myocardial infarction [Recovered/Resolved]
  - Atrial fibrillation [Recovered/Resolved]
  - Coronary artery disease [Recovered/Resolved]

NARRATIVE: CASE EVENT DATE: 201703
